FAERS Safety Report 25144197 (Version 2)
Quarter: 2025Q2

REPORT INFORMATION
  Report Type: Spontaneous
  Country: PK (occurrence: PK)
  Receive Date: 20250401
  Receipt Date: 20250410
  Transmission Date: 20250716
  Serious: No
  Sender: ALKEM
  Company Number: PK-ALKEM LABORATORIES LIMITED-PK-ALKEM-2025-03291

PATIENT
  Age: 62 Year
  Sex: Male

DRUGS (2)
  1. CAPECITABINE [Suspect]
     Active Substance: CAPECITABINE
     Indication: Colorectal cancer
     Route: 065
  2. OXALIPLATIN [Concomitant]
     Active Substance: OXALIPLATIN
     Indication: Colorectal cancer
     Route: 065

REACTIONS (2)
  - Fingerprint loss [Recovering/Resolving]
  - Palmar-plantar erythrodysaesthesia syndrome [Recovering/Resolving]
